FAERS Safety Report 23876734 (Version 3)
Quarter: 2024Q2

REPORT INFORMATION
  Report Type: Spontaneous
  Country: US (occurrence: US)
  Receive Date: 20240521
  Receipt Date: 20240605
  Transmission Date: 20240716
  Serious: Yes (Hospitalization, Other)
  Sender: FDA-Public Use
  Company Number: US-JNJFOC-20240531638

PATIENT
  Age: 61 Year
  Sex: Male
  Weight: 101.2 kg

DRUGS (8)
  1. INVEGA SUSTENNA [Suspect]
     Active Substance: PALIPERIDONE PALMITATE
     Indication: Schizoaffective disorder
     Route: 030
     Dates: start: 20240501
  2. INVEGA SUSTENNA [Suspect]
     Active Substance: PALIPERIDONE PALMITATE
  3. INVEGA SUSTENNA [Suspect]
     Active Substance: PALIPERIDONE PALMITATE
  4. RISPERDAL [Suspect]
     Active Substance: RISPERIDONE
     Indication: Schizophrenia
     Route: 048
     Dates: start: 20240521
  5. HALOPERIDOL [Suspect]
     Active Substance: HALOPERIDOL
     Indication: Product used for unknown indication
     Route: 065
  6. ABILIFY [Suspect]
     Active Substance: ARIPIPRAZOLE
     Indication: Bipolar disorder
     Route: 065
  7. ABILIFY MAINTENA [Suspect]
     Active Substance: ARIPIPRAZOLE
     Indication: Product used for unknown indication
     Route: 065
  8. GEODON [Concomitant]
     Active Substance: ZIPRASIDONE HYDROCHLORIDE\ZIPRASIDONE MESYLATE

REACTIONS (25)
  - Lymphoma [Unknown]
  - Deep vein thrombosis [Unknown]
  - Coma [Unknown]
  - Peripheral arterial occlusive disease [Unknown]
  - Rib fracture [Unknown]
  - Neck injury [Unknown]
  - Contusion [Unknown]
  - Neuroleptic malignant syndrome [Unknown]
  - Diabetes mellitus [Unknown]
  - Oedema peripheral [Unknown]
  - Cyst [Unknown]
  - Chest pain [Unknown]
  - Arthralgia [Unknown]
  - Gait inability [Unknown]
  - Musculoskeletal pain [Unknown]
  - Paraesthesia [Unknown]
  - Insomnia [Unknown]
  - Mass [Unknown]
  - Skin odour abnormal [Unknown]
  - Illness [Unknown]
  - Lipoma [Unknown]
  - Pollakiuria [Unknown]
  - Pain [Unknown]
  - Somnolence [Unknown]
  - Refusal of treatment by patient [Unknown]

NARRATIVE: CASE EVENT DATE: 20240505
